FAERS Safety Report 25347255 (Version 1)
Quarter: 2025Q2

REPORT INFORMATION
  Report Type: Spontaneous
  Country: US (occurrence: US)
  Receive Date: 20250522
  Receipt Date: 20250522
  Transmission Date: 20250716
  Serious: No
  Sender: LEO PHARM
  Company Number: US-LEO Pharma-379987

PATIENT
  Age: 25 Year
  Sex: Female

DRUGS (2)
  1. ADBRY [Suspect]
     Active Substance: TRALOKINUMAB-LDRM
     Indication: Dermatitis atopic
     Dates: start: 202502
  2. ADBRY [Suspect]
     Active Substance: TRALOKINUMAB-LDRM
     Indication: Psoriasis
     Dates: start: 202502

REACTIONS (4)
  - Dermatitis atopic [Recovering/Resolving]
  - Dyspnoea [Unknown]
  - Oropharyngeal pain [Unknown]
  - Nasal congestion [Unknown]
